FAERS Safety Report 7485061-8 (Version None)
Quarter: 2011Q2

REPORT INFORMATION
  Report Type: 
  Country: None (occurrence: None)
  Receive Date: 20110517
  Receipt Date: 20101112
  Transmission Date: 20111010
  Serious: No
  Sender: FDA-Public Use
  Company Number: US-BAYER-201023151BCC

PATIENT
  Sex: Female

DRUGS (1)
  1. NAPROXEN (ALEVE) [Suspect]
     Indication: JOINT SWELLING
     Dosage: 440 MG, BID

REACTIONS (4)
  - WEIGHT DECREASED [None]
  - STOMATITIS [None]
  - MOUTH ULCERATION [None]
  - EATING DISORDER [None]
